FAERS Safety Report 11122846 (Version 2)
Quarter: 2015Q2

REPORT INFORMATION
  Report Type: Spontaneous
  Country: US (occurrence: US)
  Receive Date: 20150519
  Receipt Date: 20150624
  Transmission Date: 20150821
  Serious: No
  Sender: FDA-Public Use
  Company Number: US-PFIZER INC-2015166975

PATIENT
  Age: 81 Year
  Sex: Female

DRUGS (3)
  1. PREMARIN [Suspect]
     Active Substance: ESTROGENS, CONJUGATED
     Indication: PROPHYLAXIS
     Dosage: 0.3 MG, 1X/DAY
  2. VIROPTIC [Suspect]
     Active Substance: TRIFLURIDINE
     Indication: HERPES OPHTHALMIC
     Dosage: 2 TO 9 DROPS WHEN SHE HAD AN ATTACK
  3. PROVERA [Suspect]
     Active Substance: MEDROXYPROGESTERONE ACETATE
     Indication: PROPHYLAXIS
     Dosage: 2.5 MG, 1X/DAY

REACTIONS (1)
  - Oropharyngeal pain [Recovered/Resolved]

NARRATIVE: CASE EVENT DATE: 2014
